FAERS Safety Report 5106181-9 (Version None)
Quarter: 2006Q3

REPORT INFORMATION
  Report Type: 
  Country: None (occurrence: None)
  Receive Date: 20060912
  Receipt Date: 20060831
  Transmission Date: 20061208
  Serious: Yes (Hospitalization)
  Sender: FDA-Public Use
  Company Number: 2006085127

PATIENT
  Age: 78 Year
  Sex: Male
  Weight: 70 kg

DRUGS (8)
  1. ALDACTONE [Suspect]
     Indication: DRUG USE FOR UNKNOWN INDICATION
     Dosage: 25MG (25 MG, 1 IN 1 D); ORAL
     Route: 048
     Dates: start: 19920615, end: 20060409
  2. HYTACAND (CANDESARTAN CILEXETIL, HYDROCHLOROTHIAZIDE) [Suspect]
     Indication: DRUG USE FOR UNKNOWN INDICATION
     Dosage: 16 MG (16 MG, 1 IN 1 D); ORAL
     Route: 048
     Dates: start: 19920615
  3. ASPIRIN [Concomitant]
  4. CREON [Concomitant]
  5. OMEPRAZOLE [Concomitant]
  6. NPH INSULIN [Concomitant]
  7. METFORMIN HCL [Concomitant]
  8. ATENOLOL [Concomitant]

REACTIONS (10)
  - ATRIAL FIBRILLATION [None]
  - BLOOD CALCIUM DECREASED [None]
  - BUNDLE BRANCH BLOCK RIGHT [None]
  - CREATININE RENAL CLEARANCE DECREASED [None]
  - DRUG INTERACTION [None]
  - ELECTROCARDIOGRAM QT PROLONGED [None]
  - FALL [None]
  - FEMORAL NECK FRACTURE [None]
  - HYPERKALAEMIA [None]
  - SUPRAVENTRICULAR EXTRASYSTOLES [None]
